FAERS Safety Report 24618810 (Version 1)
Quarter: 2024Q4

REPORT INFORMATION
  Report Type: Spontaneous
  Country: US (occurrence: None)
  Receive Date: 20241113
  Receipt Date: 20241113
  Transmission Date: 20250115
  Serious: Yes (Other)
  Sender: Public
  Company Number: None

PATIENT
  Age: 25 Year
  Sex: Female

DRUGS (1)
  1. HADLIMA [Suspect]
     Active Substance: ADALIMUMAB-BWWD
     Dates: start: 20240820, end: 20241113

REACTIONS (6)
  - Injection site reaction [None]
  - Injection site pain [None]
  - Injection site pain [None]
  - Injection site swelling [None]
  - Injection site erythema [None]
  - Injection site rash [None]

NARRATIVE: CASE EVENT DATE: 20241113
